FAERS Safety Report 6979636-X (Version None)
Quarter: 2010Q3

REPORT INFORMATION
  Report Type: 
  Country: None (occurrence: None)
  Receive Date: 20100910
  Receipt Date: 20100910
  Transmission Date: 20110219
  Serious: Yes (Life-Threatening, Hospitalization, Disabling, Other)
  Sender: FDA-Public Use
  Company Number: None

PATIENT
  Age: 86 Year
  Sex: Female
  Weight: 72.5755 kg

DRUGS (1)
  1. EXELON [Suspect]
     Indication: DEMENTIA
     Dates: start: 20100816, end: 20100825

REACTIONS (5)
  - DEHYDRATION [None]
  - EYE ROLLING [None]
  - OEDEMA PERIPHERAL [None]
  - SWELLING FACE [None]
  - URINARY TRACT INFECTION [None]
